FAERS Safety Report 10682198 (Version 1)
Quarter: 2014Q4

REPORT INFORMATION
  Report Type: Spontaneous
  Country: US (occurrence: US)
  Receive Date: 20141230
  Receipt Date: 20141230
  Transmission Date: 20150529
  Serious: No
  Sender: FDA-Public Use
  Company Number: US-PFIZER INC-2014358024

PATIENT
  Age: 58 Year
  Sex: Female

DRUGS (1)
  1. LYRICA [Suspect]
     Active Substance: PREGABALIN
     Dosage: UNK, 3X/DAY

REACTIONS (6)
  - Somnolence [Unknown]
  - Gastrooesophageal reflux disease [Unknown]
  - Hallucination [Unknown]
  - Insomnia [Unknown]
  - Euphoric mood [Unknown]
  - Muscle spasms [Unknown]
